FAERS Safety Report 11636654 (Version 1)
Quarter: 2015Q4

REPORT INFORMATION
  Report Type: Spontaneous
  Country: GB (occurrence: GB)
  Receive Date: 20151016
  Receipt Date: 20151016
  Transmission Date: 20160304
  Serious: Yes (Hospitalization, Other)
  Sender: FDA-Public Use
  Company Number: GB-ACTAVISPR-2015-22135

PATIENT
  Age: 25 Year
  Sex: Male

DRUGS (1)
  1. COCODAMOL [Suspect]
     Active Substance: ACETAMINOPHEN\CODEINE PHOSPHATE
     Indication: OVERDOSE
     Dosage: 60-70 TABLETS, TOTAL 30-35 G PARACETAMOL/480-560 MG CODEINE, SINGLE
     Route: 065

REACTIONS (3)
  - Overdose [Recovered/Resolved]
  - Coagulopathy [Recovered/Resolved]
  - Hepatotoxicity [Recovered/Resolved]
